FAERS Safety Report 23070572 (Version 3)
Quarter: 2023Q4

REPORT INFORMATION
  Report Type: Spontaneous
  Country: BR (occurrence: BR)
  Receive Date: 20231016
  Receipt Date: 20231030
  Transmission Date: 20240110
  Serious: Yes (Other)
  Sender: FDA-Public Use
  Company Number: BR-China IPSEN SC-2023-23265

PATIENT
  Sex: Male

DRUGS (1)
  1. DYSPORT [Suspect]
     Active Substance: ABOBOTULINUMTOXINA
     Indication: Dystonia
     Route: 065
     Dates: start: 20230728, end: 20230728

REACTIONS (5)
  - Injection site papule [Not Recovered/Not Resolved]
  - Injection site vesicles [Not Recovered/Not Resolved]
  - Injection site necrosis [Not Recovered/Not Resolved]
  - Urinary tract infection [Unknown]
  - Prostatic pain [Unknown]

NARRATIVE: CASE EVENT DATE: 20230101
